FAERS Safety Report 5688760-3 (Version None)
Quarter: 2008Q1

REPORT INFORMATION
  Report Type: 
  Country: None (occurrence: None)
  Receive Date: 20080331
  Receipt Date: 20080318
  Transmission Date: 20080703
  Serious: No
  Sender: FDA-Public Use
  Company Number: CA-AMGEN-US270568

PATIENT
  Age: 58 Year
  Sex: Male
  Weight: 89.9 kg

DRUGS (10)
  1. SENSIPAR [Suspect]
     Indication: HYPERPARATHYROIDISM SECONDARY
     Route: 048
     Dates: start: 20080229, end: 20080305
  2. ASPIRIN [Concomitant]
     Route: 065
  3. AMINOSALICYLIC ACID [Concomitant]
     Route: 065
  4. LIPITOR [Concomitant]
     Route: 065
  5. METOPROLOL TARTRATE [Concomitant]
     Route: 048
  6. LANTHANUM CARBONATE [Concomitant]
     Route: 065
  7. LOSEC I.V. [Concomitant]
     Route: 065
  8. VITAMIN CAP [Concomitant]
     Route: 065
  9. ZOPICLONE [Concomitant]
     Route: 065
  10. NOVOLIN N [Concomitant]

REACTIONS (1)
  - EXFOLIATIVE RASH [None]
